FAERS Safety Report 10393303 (Version 2)
Quarter: 2014Q3

REPORT INFORMATION
  Report Type: Spontaneous
  Country: FR (occurrence: FR)
  Receive Date: 20140819
  Receipt Date: 20140820
  Transmission Date: 20150326
  Serious: Yes (Hospitalization, Other)
  Sender: FDA-Public Use
  Company Number: FR-PFIZER INC-2014226116

PATIENT
  Age: 88 Year
  Sex: Female

DRUGS (14)
  1. PREVISCAN [Concomitant]
     Active Substance: FLUINDIONE
  2. DIFFU K [Concomitant]
     Active Substance: POTASSIUM CHLORIDE
  3. TITANOREINE [Concomitant]
     Active Substance: CARRAGEENAN\TITANIUM\ZINC
  4. THERALENE [Concomitant]
     Active Substance: TRIMEPRAZINE
  5. BISOCE [Concomitant]
     Active Substance: BISOPROLOL
  6. LYRICA [Suspect]
     Active Substance: PREGABALIN
     Indication: NEURALGIA
     Dosage: 75 MG, 1X/DAY (25 + 50 MG DAILY)
     Route: 048
     Dates: start: 20140718, end: 20140721
  7. EPINITRIL [Concomitant]
     Active Substance: NITROGLYCERIN
  8. HEMIGOXINE NATIVELLE [Concomitant]
     Active Substance: DIGOXIN
  9. INEXIUM [Concomitant]
     Active Substance: ESOMEPRAZOLE
  10. TRANSIPEG [Concomitant]
     Active Substance: POLYETHYLENE GLYCOL 3350
  11. NATISPRAY [Concomitant]
     Active Substance: NITROGLYCERIN
  12. INSPRA [Concomitant]
     Active Substance: EPLERENONE
  13. LASILIX [Concomitant]
     Active Substance: FUROSEMIDE
  14. DOLIPRANE [Concomitant]
     Active Substance: ACETAMINOPHEN

REACTIONS (4)
  - Confusional state [Recovered/Resolved]
  - Somnolence [Recovered/Resolved]
  - Asterixis [Recovered/Resolved]
  - Language disorder [Recovered/Resolved]

NARRATIVE: CASE EVENT DATE: 20140722
